FAERS Safety Report 7961253-6 (Version None)
Quarter: 2011Q4

REPORT INFORMATION
  Report Type: 
  Country: None (occurrence: None)
  Receive Date: 20111202
  Receipt Date: 20111121
  Transmission Date: 20120403
  Serious: Yes (Disabling)
  Sender: FDA-Public Use
  Company Number: 2011P1011115

PATIENT
  Age: 37 Year
  Sex: Male
  Weight: 43.0917 kg

DRUGS (3)
  1. FENTANYL [Suspect]
     Indication: BACK PAIN
     Dosage: 1 PATCH;Q72HR;TDER
     Route: 062
     Dates: start: 20111118
  2. FENTANYL CITRATE [Suspect]
     Indication: BACK PAIN
     Dosage: 1 PATCH;Q72H;TDER
     Route: 062
     Dates: start: 20111001, end: 20111118
  3. CLONAZEPAM [Concomitant]

REACTIONS (15)
  - INCORRECT DOSE ADMINISTERED BY DEVICE [None]
  - WITHDRAWAL SYNDROME [None]
  - PRODUCT SUBSTITUTION ISSUE [None]
  - EUPHORIC MOOD [None]
  - BACK PAIN [None]
  - SEDATION [None]
  - MENTAL IMPAIRMENT [None]
  - DECREASED APPETITE [None]
  - DYSARTHRIA [None]
  - INADEQUATE ANALGESIA [None]
  - WEIGHT DECREASED [None]
  - VOMITING [None]
  - INSOMNIA [None]
  - CONDITION AGGRAVATED [None]
  - FEELING ABNORMAL [None]
